FAERS Safety Report 7405583-5 (Version None)
Quarter: 2011Q2

REPORT INFORMATION
  Report Type: 
  Country: None (occurrence: None)
  Receive Date: 20110411
  Receipt Date: 20110329
  Transmission Date: 20111010
  Serious: Yes (Hospitalization, Other)
  Sender: FDA-Public Use
  Company Number: PHHY2011US01785

PATIENT
  Sex: Female
  Weight: 98.413 kg

DRUGS (9)
  1. TOPAMAX [Concomitant]
     Dosage: 100 MG, BID
  2. AMITRIPTYLINE [Concomitant]
     Dosage: 25 MG, A DAY
  3. COLESTIPOL HYDROCHLORIDE [Concomitant]
     Dosage: 1 G, BID
  4. RELAFEN [Concomitant]
     Dosage: 75 MG, BID
  5. PHENOBARBITAL SRT [Concomitant]
     Dosage: 129 MG, AT BED TIME
  6. PSYLLIUM [Concomitant]
     Dosage: UNK
  7. EXJADE [Suspect]
     Indication: LYMPHOPROLIFERATIVE DISORDER
     Dosage: 2000 MG, QD
     Route: 048
     Dates: start: 20100517
  8. NORCO [Concomitant]
     Dosage: UNK
  9. MOMETASONE FUROATE [Concomitant]

REACTIONS (8)
  - ALTERED STATE OF CONSCIOUSNESS [None]
  - IRON OVERLOAD [None]
  - DYSARTHRIA [None]
  - CONVULSION [None]
  - ASTHENIA [None]
  - SINUSITIS [None]
  - FATIGUE [None]
  - INFLUENZA LIKE ILLNESS [None]
